FAERS Safety Report 7476361-6 (Version None)
Quarter: 2011Q2

REPORT INFORMATION
  Report Type: 
  Country: None (occurrence: None)
  Receive Date: 20110512
  Receipt Date: 20110506
  Transmission Date: 20111010
  Serious: Yes (Other)
  Sender: FDA-Public Use
  Company Number: A0922854A

PATIENT
  Age: 67 Year
  Sex: Female

DRUGS (4)
  1. TOPROL-XL [Concomitant]
  2. ADVAIR DISKUS 100/50 [Suspect]
     Indication: ASTHMA
     Dosage: 1PUFF TWICE PER DAY
     Route: 055
     Dates: start: 20090401, end: 20110408
  3. PROCARDIA [Concomitant]
  4. HYZAAR [Concomitant]

REACTIONS (5)
  - DRUG ADMINISTRATION ERROR [None]
  - TREMOR [None]
  - NERVOUSNESS [None]
  - HEADACHE [None]
  - CEREBROVASCULAR ACCIDENT [None]
